FAERS Safety Report 20590697 (Version 1)
Quarter: 2022Q1

REPORT INFORMATION
  Report Type: Report from Study
  Country: JP (occurrence: JP)
  Receive Date: 20220314
  Receipt Date: 20220314
  Transmission Date: 20220424
  Serious: Yes (Hospitalization)
  Sender: FDA-Public Use
  Company Number: JP-JNJFOC-A-CH2019-197556

PATIENT
  Age: 80 Year
  Sex: Female

DRUGS (19)
  1. TRACLEER [Suspect]
     Active Substance: BOSENTAN
     Indication: Scleroderma associated digital ulcer
     Dosage: 62.5 MG, BID
     Route: 048
     Dates: start: 20160118, end: 20181206
  2. TRACLEER [Suspect]
     Active Substance: BOSENTAN
     Indication: Skin ulcer
     Dosage: IN THE MORNING AND EVENING
     Route: 048
     Dates: start: 20160118, end: 20160705
  3. TRACLEER [Suspect]
     Active Substance: BOSENTAN
     Dosage: IN THE MORNING AND EVENING
     Route: 048
     Dates: start: 20161006, end: 20181206
  4. LANSOPRAZOLE [Concomitant]
     Active Substance: LANSOPRAZOLE
     Indication: Gastrooesophageal reflux disease
     Route: 048
     Dates: start: 20180129
  5. VONOPRAZAN FUMARATE [Concomitant]
     Active Substance: VONOPRAZAN FUMARATE
     Indication: Gastrooesophageal reflux disease
     Route: 048
     Dates: start: 20180130
  6. PREDONINE [Concomitant]
     Active Substance: PREDNISOLONE
     Indication: Systemic scleroderma
     Route: 048
  7. PREDONINE [Concomitant]
     Active Substance: PREDNISOLONE
     Dosage: 8-10MG PER TIME/DAY
     Route: 048
     Dates: end: 20180321
  8. PREDONINE [Concomitant]
     Active Substance: PREDNISOLONE
     Route: 048
     Dates: end: 20180322
  9. DEPAKENE [Concomitant]
     Active Substance: VALPROIC ACID
     Indication: Epilepsy
     Route: 048
  10. DEPAKENE [Concomitant]
     Active Substance: VALPROIC ACID
     Dosage: 40MG-50MG PER TIME
     Route: 048
     Dates: end: 20161201
  11. AMINO ACIDS\DEXTROSE\ELECTROLYTES NOS [Concomitant]
     Active Substance: AMINO ACIDS\DEXTROSE\ELECTROLYTES NOS
     Indication: Gastrooesophageal reflux disease
     Route: 048
  12. AMINO ACIDS\DEXTROSE\ELECTROLYTES NOS [Concomitant]
     Active Substance: AMINO ACIDS\DEXTROSE\ELECTROLYTES NOS
     Dosage: 200ML,3-4TIMES/DAY
     Route: 048
     Dates: end: 20181206
  13. TOCOPHERYL NICOTINATE, D-.ALPHA. [Concomitant]
     Active Substance: TOCOPHERYL NICOTINATE, D-.ALPHA.
     Indication: Systemic scleroderma
     Route: 048
  14. TOCOPHERYL NICOTINATE, D-.ALPHA. [Concomitant]
     Active Substance: TOCOPHERYL NICOTINATE, D-.ALPHA.
     Dosage: 200MG,1-3TIMES/DAY
     Route: 048
     Dates: end: 20181206
  15. OPALMON [Concomitant]
     Active Substance: LIMAPROST
     Indication: Systemic scleroderma
     Route: 048
  16. OPALMON [Concomitant]
     Active Substance: LIMAPROST
     Dosage: 5G,2-3TIMES/DAY
     Route: 048
     Dates: end: 20181206
  17. CILOSTAZOL [Concomitant]
     Active Substance: CILOSTAZOL
     Indication: Systemic scleroderma
     Route: 048
  18. CILOSTAZOL [Concomitant]
     Active Substance: CILOSTAZOL
     Dosage: 100MG,1-2TIMES/DAY
     Route: 048
     Dates: end: 20181206
  19. NORSPAN [Concomitant]
     Active Substance: BUPRENORPHINE
     Dosage: ONCE A WEEK
     Route: 062
     Dates: end: 20160223

REACTIONS (3)
  - Oesophageal carcinoma [Recovered/Resolved]
  - Oesophagectomy [Unknown]
  - Oesophageal anastomosis [Unknown]

NARRATIVE: CASE EVENT DATE: 20181129
